FAERS Safety Report 8124534-1 (Version None)
Quarter: 2012Q1

REPORT INFORMATION
  Report Type: 
  Country: None (occurrence: None)
  Receive Date: 20120209
  Receipt Date: 20120201
  Transmission Date: 20120608
  Serious: No
  Sender: FDA-Public Use
  Company Number: US-B.I. PHARMACEUTICALS,INC./RIDGEFIELD-2011-BP-13281BP

PATIENT
  Sex: Female

DRUGS (12)
  1. DIGOXIN [Concomitant]
     Indication: ATRIAL FIBRILLATION
     Dosage: 0.25 MG
     Route: 048
     Dates: start: 20070101, end: 20110801
  2. VITAMIN E [Concomitant]
     Indication: PROPHYLAXIS
     Dosage: 400 U
     Route: 048
  3. CARDIZEM [Concomitant]
     Indication: HEART VALVE INCOMPETENCE
  4. OXYGEN [Concomitant]
     Indication: SLEEP APNOEA SYNDROME
  5. FISH OIL [Concomitant]
     Indication: SUPPLEMENTATION THERAPY
     Route: 048
  6. DIGOXIN [Concomitant]
     Indication: HEART VALVE INCOMPETENCE
     Dosage: 0.125 MG
     Route: 048
     Dates: start: 20110801
  7. IRON [Concomitant]
     Indication: ANAEMIA
     Dosage: 650 MG
     Route: 048
     Dates: start: 20120201
  8. CARDIZEM [Concomitant]
     Indication: HYPERTENSION
     Dosage: 240 MG
     Route: 048
     Dates: start: 20070101
  9. PRADAXA [Suspect]
     Indication: ATRIAL FIBRILLATION
     Dosage: 300 MG
     Route: 048
     Dates: start: 20110302, end: 20120105
  10. FOLIC ACID [Concomitant]
     Indication: PROPHYLAXIS
     Route: 048
  11. CALCIUM + VITAMIN D [Concomitant]
     Indication: PROPHYLAXIS
     Route: 048
  12. VITAMIN D [Concomitant]
     Indication: PROPHYLAXIS
     Dosage: 1000 U
     Route: 048

REACTIONS (5)
  - DIZZINESS [None]
  - MELAENA [None]
  - ANAEMIA [None]
  - OEDEMA PERIPHERAL [None]
  - JOINT SWELLING [None]
